FAERS Safety Report 22041022 (Version 1)
Quarter: 2023Q1

REPORT INFORMATION
  Report Type: Spontaneous
  Country: US (occurrence: None)
  Receive Date: 20230226
  Receipt Date: 20230226
  Transmission Date: 20230418
  Serious: Yes (Other)
  Sender: FDA-Public Use
  Company Number: None

PATIENT
  Age: 49 Year
  Sex: Female
  Weight: 74.25 kg

DRUGS (1)
  1. TELMISARTAN [Suspect]
     Active Substance: TELMISARTAN
     Indication: Hypertension
     Dosage: OTHER QUANTITY : 30 TABLET(S);?
     Route: 048
     Dates: start: 20230218, end: 20230223

REACTIONS (10)
  - Dysuria [None]
  - Abdominal discomfort [None]
  - Back pain [None]
  - Cough [None]
  - Secretion discharge [None]
  - Headache [None]
  - Dizziness [None]
  - Blood pressure increased [None]
  - Oropharyngeal pain [None]
  - Therapy cessation [None]

NARRATIVE: CASE EVENT DATE: 20230218
